FAERS Safety Report 8814274 (Version 1)
Quarter: 2012Q4

REPORT INFORMATION
  Report Type: 
  Country: US (occurrence: US)
  Receive Date: 20120928
  Receipt Date: 20120928
  Transmission Date: 20130627
  Serious: Yes (Hospitalization)
  Sender: FDA-Public Use
  Company Number: US-BAYER-2012-100697

PATIENT
  Age: 47 Year
  Sex: Female

DRUGS (21)
  1. YAZ [Suspect]
     Indication: MENSTRUAL CYCLE MANAGEMENT
  2. GIANVI [Suspect]
  3. CELEXA [Concomitant]
     Dosage: 20 mg, UNK
  4. ACETAMINOPHEN [Concomitant]
     Dosage: 650 mg, UNK
  5. PATANOL [Concomitant]
  6. NEXIUM [Concomitant]
     Dosage: 20 mg, UNK
  7. CYANOCOBALAMIN [Concomitant]
     Dosage: 1000 mg, UNK
  8. LEXAPRO [Concomitant]
     Dosage: 20 mg, UNK
  9. SINGULAIR [Concomitant]
     Dosage: 10 mg, UNK
  10. PRILOSEC [Concomitant]
     Indication: GASTROINTESTINAL DISORDER THERAPY
     Dosage: 20 mg, UNK
  11. NASONEX [Concomitant]
  12. AMBIEN CR [Concomitant]
     Dosage: 12.5 mg, UNK
  13. CALCIUM [Concomitant]
     Dosage: 500 mg, UNK
  14. FISH OIL [Concomitant]
     Dosage: 1000 mg, UNK
  15. VITAMIN D [Concomitant]
     Dosage: 1000 mg, UNK
  16. ZYRTEC-D [Concomitant]
  17. DICLOFENAC SODIUM EC [Concomitant]
     Dosage: 75 mg, UNK
  18. FEXOFENADINE HYDROCHLORIDE [Concomitant]
     Dosage: 180 mg, UNK
  19. ZOLPIDEM TARTRATE [Concomitant]
     Dosage: 10 mg, UNK
  20. RESTORIL [Concomitant]
     Indication: INSOMNIA
  21. FERREX 150 FORTE [Concomitant]

REACTIONS (2)
  - Deep vein thrombosis [None]
  - Pulmonary embolism [None]
